FAERS Safety Report 22330943 (Version 4)
Quarter: 2024Q4

REPORT INFORMATION
  Report Type: Report from Study
  Country: CA (occurrence: CA)
  Receive Date: 20230517
  Receipt Date: 20241029
  Transmission Date: 20250114
  Serious: Yes (Other)
  Sender: BIOGEN
  Company Number: CA-BIOGEN-2023BI01205148

PATIENT
  Age: 13 Year
  Sex: Female

DRUGS (3)
  1. TYSABRI [Suspect]
     Active Substance: NATALIZUMAB
     Indication: Multiple sclerosis
     Route: 050
     Dates: start: 20220303
  2. TYSABRI [Suspect]
     Active Substance: NATALIZUMAB
     Route: 050
     Dates: start: 20220303
  3. TYSABRI [Suspect]
     Active Substance: NATALIZUMAB
     Route: 050
     Dates: start: 20220303

REACTIONS (5)
  - Partial seizures [Recovered/Resolved]
  - Syncope [Unknown]
  - Incorrect drug administration rate [Unknown]
  - Hypotension [Unknown]
  - Psychogenic seizure [Unknown]

NARRATIVE: CASE EVENT DATE: 20230201
